FAERS Safety Report 19378188 (Version 2)
Quarter: 2021Q4

REPORT INFORMATION
  Report Type: Report from Study
  Country: KR (occurrence: KR)
  Receive Date: 20210605
  Receipt Date: 20211202
  Transmission Date: 20220303
  Serious: Yes (Other)
  Sender: FDA-Public Use
  Company Number: KR-KYOWAKIRIN-2021AKK009331

PATIENT
  Age: 36 Year
  Sex: Female

DRUGS (89)
  1. FILGRASTIM [Suspect]
     Active Substance: FILGRASTIM
     Indication: Product used for unknown indication
     Dosage: 150 UNK
     Route: 065
     Dates: start: 20110509, end: 20110509
  2. FILGRASTIM [Suspect]
     Active Substance: FILGRASTIM
     Dosage: 150 UNK
     Route: 065
     Dates: start: 20110511, end: 20110519
  3. FILGRASTIM [Suspect]
     Active Substance: FILGRASTIM
     Dosage: 150 UNK
     Route: 065
     Dates: start: 20110623, end: 20110625
  4. FILGRASTIM [Suspect]
     Active Substance: FILGRASTIM
     Dosage: 150 UNK
     Route: 065
     Dates: start: 20110724, end: 20110730
  5. FILGRASTIM [Suspect]
     Active Substance: FILGRASTIM
     Dosage: 150 UNK
     Route: 065
     Dates: start: 20110817, end: 20110905
  6. FILGRASTIM [Suspect]
     Active Substance: FILGRASTIM
     Dosage: 150 UNK
     Route: 065
     Dates: start: 20110911, end: 20110911
  7. FILGRASTIM [Suspect]
     Active Substance: FILGRASTIM
     Dosage: 150 UNK
     Route: 065
     Dates: start: 20110915, end: 20110915
  8. FILGRASTIM [Suspect]
     Active Substance: FILGRASTIM
     Dosage: 150 UNK
     Route: 065
     Dates: start: 20110920, end: 20110920
  9. FILGRASTIM [Suspect]
     Active Substance: FILGRASTIM
     Dosage: 150 UNK
     Route: 065
     Dates: start: 20110924, end: 20110924
  10. DECITABINE [Concomitant]
     Active Substance: DECITABINE
     Indication: Product used for unknown indication
     Dosage: 20 UNK, QD
     Dates: start: 20110418, end: 20110418
  11. DECITABINE [Concomitant]
     Active Substance: DECITABINE
     Dosage: 20 UNK, QD
     Dates: start: 20110419, end: 20110419
  12. DECITABINE [Concomitant]
     Active Substance: DECITABINE
     Dosage: 20 UNK, QD
     Dates: start: 20110420, end: 20110420
  13. DECITABINE [Concomitant]
     Active Substance: DECITABINE
     Dosage: 20 UNK, QD
     Dates: start: 20110421, end: 20110421
  14. DECITABINE [Concomitant]
     Active Substance: DECITABINE
     Dosage: 20 UNK, QD
     Dates: start: 20110422, end: 20110422
  15. DECITABINE [Concomitant]
     Active Substance: DECITABINE
     Dosage: 20 UNK, QD
     Dates: start: 20110523, end: 20110523
  16. DECITABINE [Concomitant]
     Active Substance: DECITABINE
     Dosage: 20 UNK, QD
     Dates: start: 20110524, end: 20110524
  17. DECITABINE [Concomitant]
     Active Substance: DECITABINE
     Dosage: 20 UNK, QD
     Dates: start: 20110525, end: 20110525
  18. DECITABINE [Concomitant]
     Active Substance: DECITABINE
     Dosage: 20 UNK, QD
     Dates: start: 20110526, end: 20110526
  19. DECITABINE [Concomitant]
     Active Substance: DECITABINE
     Dosage: 20 UNK, QD
     Dates: start: 20110527, end: 20110527
  20. DECITABINE [Concomitant]
     Active Substance: DECITABINE
     Dosage: 20 UNK, QD
     Dates: start: 20110627, end: 20110627
  21. DECITABINE [Concomitant]
     Active Substance: DECITABINE
     Dosage: 20 UNK, QD
     Dates: start: 20110628, end: 20110628
  22. DECITABINE [Concomitant]
     Active Substance: DECITABINE
     Dosage: 20 UNK, QD
     Dates: start: 20110629, end: 20110629
  23. DECITABINE [Concomitant]
     Active Substance: DECITABINE
     Dosage: 20 UNK, QD
     Dates: start: 20110630, end: 20110630
  24. DECITABINE [Concomitant]
     Active Substance: DECITABINE
     Dosage: 20 UNK, QD
     Dates: start: 20110701, end: 20110701
  25. DECITABINE [Concomitant]
     Active Substance: DECITABINE
     Dosage: 20 UNK, QD
     Dates: start: 20110801, end: 20110801
  26. DECITABINE [Concomitant]
     Active Substance: DECITABINE
     Dosage: 20 UNK, QD
     Dates: start: 20110802, end: 20110802
  27. DECITABINE [Concomitant]
     Active Substance: DECITABINE
     Dosage: 20 UNK, QD
     Dates: start: 20110803, end: 20110803
  28. DECITABINE [Concomitant]
     Active Substance: DECITABINE
     Dosage: 20 UNK, QD
     Dates: start: 20110804, end: 20110804
  29. DECITABINE [Concomitant]
     Active Substance: DECITABINE
     Dosage: 20 UNK, QD
     Dates: start: 20110805, end: 20110805
  30. AMOXICILLIN\CLAVULANATE POTASSIUM [Concomitant]
     Active Substance: AMOXICILLIN\CLAVULANATE POTASSIUM
     Indication: Product used for unknown indication
     Dosage: 1875 MILLIGRAM
     Dates: start: 20110921, end: 20111017
  31. AMPHOTERICIN B [Concomitant]
     Active Substance: AMPHOTERICIN B
     Indication: Product used for unknown indication
     Dosage: 22.7 MILLIGRAM
     Dates: start: 20110901, end: 20110901
  32. AMPHOTERICIN B [Concomitant]
     Active Substance: AMPHOTERICIN B
     Dosage: 45 MILLIGRAM
     Dates: start: 20110920, end: 20110920
  33. AMPHOTERICIN B [Concomitant]
     Active Substance: AMPHOTERICIN B
     Dosage: 45.3 MILLIGRAM
     Dates: start: 20110902, end: 20110907
  34. AMPHOTERICIN B [Concomitant]
     Active Substance: AMPHOTERICIN B
     Dosage: 46 MILLIGRAM
     Dates: start: 20110914, end: 20110919
  35. AMPHOTERICIN B [Concomitant]
     Active Substance: AMPHOTERICIN B
     Dosage: 46.3 MILLIGRAM
     Dates: start: 20110908, end: 20110913
  36. AMPICILLIN + CLOXACILLIN [AMPICILLIN;CLOXACILLIN] [Concomitant]
     Indication: Product used for unknown indication
     Dosage: 6000 MILLIGRAM
     Dates: start: 20110826, end: 20110826
  37. CEFEPIME [Concomitant]
     Active Substance: CEFEPIME HYDROCHLORIDE
     Indication: Product used for unknown indication
     Dosage: 4 UNK
     Dates: start: 20110509, end: 20110511
  38. CEFEPIME [Concomitant]
     Active Substance: CEFEPIME HYDROCHLORIDE
     Dosage: 4 UNK
     Dates: start: 20110617, end: 20110626
  39. CEFEPIME [Concomitant]
     Active Substance: CEFEPIME HYDROCHLORIDE
     Dosage: 4 UNK
     Dates: start: 20110724, end: 20110803
  40. CEFEPIME [Concomitant]
     Active Substance: CEFEPIME HYDROCHLORIDE
     Dosage: 4 UNK
     Dates: start: 20110801, end: 20110824
  41. CEFTRIAXONE [Concomitant]
     Active Substance: CEFTRIAXONE
     Indication: Product used for unknown indication
     Dosage: 4 UNK
     Dates: start: 20110826, end: 20110920
  42. CHLORPHENIRAMINE MALEATE [Concomitant]
     Active Substance: CHLORPHENIRAMINE MALEATE
     Indication: Product used for unknown indication
     Dosage: 4 MILLIGRAM
     Dates: start: 20110503, end: 20110503
  43. CIPROFLOXACIN [Concomitant]
     Active Substance: CIPROFLOXACIN
     Indication: Product used for unknown indication
     Dosage: 500 MILLIGRAM
     Dates: start: 20110523, end: 20110523
  44. CIPROFLOXACIN [Concomitant]
     Active Substance: CIPROFLOXACIN
     Dosage: 500 MILLIGRAM
     Dates: start: 20110528, end: 20110621
  45. CIPROFLOXACIN [Concomitant]
     Active Substance: CIPROFLOXACIN
     Dosage: 500 MILLIGRAM
     Dates: start: 20110628, end: 20110723
  46. CIPROFLOXACIN [Concomitant]
     Active Substance: CIPROFLOXACIN
     Dosage: 500 MILLIGRAM
     Dates: start: 20110803, end: 20110805
  47. CIPROFLOXACIN [Concomitant]
     Active Substance: CIPROFLOXACIN
     Dosage: 1000 MILLIGRAM
     Dates: start: 20110524, end: 20110527
  48. FUROSEMIDE [Concomitant]
     Active Substance: FUROSEMIDE
     Indication: Product used for unknown indication
     Dosage: 10 MILLIGRAM
     Dates: start: 20110512, end: 20110512
  49. FUROSEMIDE [Concomitant]
     Active Substance: FUROSEMIDE
     Dosage: 20 MILLIGRAM
     Dates: start: 20110902, end: 20110902
  50. HEPARIN [Concomitant]
     Active Substance: HEPARIN SODIUM
     Indication: Product used for unknown indication
     Dosage: 20 UNK
     Dates: start: 20110609, end: 20110609
  51. HYDROCORTISONE [Concomitant]
     Active Substance: HYDROCORTISONE
     Indication: Product used for unknown indication
     Dosage: 100 MILLIGRAM
     Dates: start: 20110503, end: 20110503
  52. ITRACONAZOLE [Concomitant]
     Active Substance: ITRACONAZOLE
     Indication: Product used for unknown indication
     Dosage: 200 MILLIGRAM
     Dates: start: 20110523, end: 20110621
  53. ITRACONAZOLE [Concomitant]
     Active Substance: ITRACONAZOLE
     Dosage: 200 MILLIGRAM
     Dates: start: 20110627, end: 20110731
  54. ITRACONAZOLE [Concomitant]
     Active Substance: ITRACONAZOLE
     Dosage: 200 MILLIGRAM
     Dates: start: 20110801, end: 20110902
  55. ITRACONAZOLE [Concomitant]
     Active Substance: ITRACONAZOLE
     Dosage: 600 MILLIGRAM
     Dates: start: 20110926, end: 20110926
  56. LACTULOSE [Concomitant]
     Active Substance: LACTULOSE
     Indication: Product used for unknown indication
     Dosage: 15 UNK
     Dates: start: 20110820, end: 20110929
  57. LACTULOSE [Concomitant]
     Active Substance: LACTULOSE
     Dosage: 45 UNK
     Dates: start: 20110820, end: 20110929
  58. MAGNESIUM OXIDE [Concomitant]
     Active Substance: MAGNESIUM OXIDE
     Indication: Product used for unknown indication
     Dosage: 1000 MILLIGRAM
     Dates: start: 20110817, end: 20110915
  59. MAGNESIUM OXIDE [Concomitant]
     Active Substance: MAGNESIUM OXIDE
     Dosage: 1500 MILLIGRAM
     Dates: start: 20110916, end: 20111011
  60. MAGNESIUM SULFATE [Concomitant]
     Active Substance: MAGNESIUM SULFATE
     Indication: Product used for unknown indication
     Dosage: 20 UNK
     Dates: start: 20110907, end: 20111003
  61. MEROPENEM [Concomitant]
     Active Substance: MEROPENEM
     Indication: Product used for unknown indication
     Dosage: 3000 MILLIGRAM
     Dates: start: 20110511, end: 20110522
  62. METRONIDAZOLE [Concomitant]
     Active Substance: METRONIDAZOLE
     Indication: Product used for unknown indication
     Dosage: 1500 MILLIGRAM
     Dates: start: 20110826, end: 20110913
  63. ACETAMINOPHEN [Concomitant]
     Active Substance: ACETAMINOPHEN
     Indication: Product used for unknown indication
     Dosage: 1300 MILLIGRAM
     Dates: start: 20110509, end: 20110511
  64. ACETAMINOPHEN [Concomitant]
     Active Substance: ACETAMINOPHEN
     Dosage: 1300 MILLIGRAM
     Dates: start: 20110513, end: 20110513
  65. ACETAMINOPHEN [Concomitant]
     Active Substance: ACETAMINOPHEN
     Dosage: 1300 MILLIGRAM
     Dates: start: 20110724, end: 20110726
  66. ACETAMINOPHEN [Concomitant]
     Active Substance: ACETAMINOPHEN
     Dosage: 1300 MILLIGRAM
     Dates: start: 20110817, end: 20110915
  67. ACETAMINOPHEN [Concomitant]
     Active Substance: ACETAMINOPHEN
     Dosage: 2600 MILLIGRAM
     Dates: start: 20110512, end: 20110512
  68. ACETAMINOPHEN [Concomitant]
     Active Substance: ACETAMINOPHEN
     Dosage: 2600 MILLIGRAM
     Dates: start: 20210514, end: 20210514
  69. CALCIUM POLYCARBOPHIL [Concomitant]
     Active Substance: CALCIUM POLYCARBOPHIL
     Indication: Product used for unknown indication
     Dosage: 1875 MILLIGRAM
     Dates: start: 20110825, end: 20111011
  70. POTASSIUM CHLORIDE [Concomitant]
     Active Substance: POTASSIUM CHLORIDE
     Indication: Product used for unknown indication
     Dosage: 20 UNK
     Dates: start: 20110901, end: 20111004
  71. POTASSIUM CHLORIDE [Concomitant]
     Active Substance: POTASSIUM CHLORIDE
     Dosage: 40 UNK
     Dates: start: 20110822, end: 20110830
  72. POTASSIUM CHLORIDE [Concomitant]
     Active Substance: POTASSIUM CHLORIDE
     Dosage: 60 UNK
     Dates: start: 20110817, end: 20110821
  73. POTASSIUM CHLORIDE [Concomitant]
     Active Substance: POTASSIUM CHLORIDE
     Dosage: 1800 MILLIGRAM
     Dates: start: 20110902, end: 20110904
  74. POTASSIUM CHLORIDE [Concomitant]
     Active Substance: POTASSIUM CHLORIDE
     Dosage: 4800 MILLIGRAM
     Dates: start: 20110510, end: 20110514
  75. POTASSIUM CHLORIDE [Concomitant]
     Active Substance: POTASSIUM CHLORIDE
     Dosage: 4800 MILLIGRAM
     Dates: start: 20110905, end: 20111004
  76. POTASSIUM PHOSPHATES [Concomitant]
     Active Substance: POTASSIUM PHOSPHATE, DIBASIC\POTASSIUM PHOSPHATE, MONOBASIC
     Indication: Product used for unknown indication
     Dosage: 20 UNK
     Dates: start: 20110511, end: 20110512
  77. PROPACETAMOL [Concomitant]
     Active Substance: PROPACETAMOL
     Indication: Product used for unknown indication
     Dosage: 1 UNK
     Dates: start: 20110510, end: 20110510
  78. PROPACETAMOL [Concomitant]
     Active Substance: PROPACETAMOL
     Dosage: 1 UNK
     Dates: start: 20110513, end: 20110514
  79. PROPACETAMOL [Concomitant]
     Active Substance: PROPACETAMOL
     Dosage: 1 UNK
     Dates: start: 20110724, end: 20110725
  80. PROPACETAMOL [Concomitant]
     Active Substance: PROPACETAMOL
     Dosage: 1 UNK
     Dates: start: 20110817, end: 20110907
  81. PROPACETAMOL [Concomitant]
     Active Substance: PROPACETAMOL
     Dosage: 2 UNK
     Dates: start: 20110512, end: 20110512
  82. PROPACETAMOL [Concomitant]
     Active Substance: PROPACETAMOL
     Dosage: 3 UNK
     Dates: start: 20110511, end: 20110511
  83. VANCOMYCIN [Concomitant]
     Active Substance: VANCOMYCIN
     Indication: Product used for unknown indication
     Dosage: 0.8 UNK
     Dates: start: 20110801, end: 20110803
  84. VANCOMYCIN [Concomitant]
     Active Substance: VANCOMYCIN
     Dosage: 1.4 UNK
     Dates: start: 20110824, end: 20110824
  85. VANCOMYCIN [Concomitant]
     Active Substance: VANCOMYCIN
     Dosage: 2 UNK
     Dates: start: 20110511, end: 20110518
  86. VANCOMYCIN [Concomitant]
     Active Substance: VANCOMYCIN
     Dosage: 2 UNK
     Dates: start: 20110726, end: 20110728
  87. VANCOMYCIN [Concomitant]
     Active Substance: VANCOMYCIN
     Dosage: 2 UNK
     Dates: start: 20110819, end: 20110821
  88. VANCOMYCIN [Concomitant]
     Active Substance: VANCOMYCIN
     Dosage: 2.4 UNK
     Dates: start: 20110729, end: 20110803
  89. VANCOMYCIN [Concomitant]
     Active Substance: VANCOMYCIN
     Dosage: 2.4 UNK
     Dates: start: 20110822, end: 20110822

REACTIONS (48)
  - Neutropenia [Recovered/Resolved]
  - Azotaemia [Recovered/Resolved]
  - Pneumonia [Recovered/Resolved]
  - Haemorrhage [Recovered/Resolved]
  - Hypokalaemia [Recovered/Resolved]
  - Aspergillus infection [Recovered/Resolved]
  - Neutropenia [Recovered/Resolved]
  - Neutropenia [Recovered/Resolved]
  - Thrombocytopenia [Recovered/Resolved]
  - Haemorrhage [Recovered/Resolved]
  - Hypokalaemia [Recovered/Resolved]
  - Hypokalaemia [Recovered/Resolved]
  - Hypokalaemia [Recovered/Resolved]
  - Hypokalaemia [Recovered/Resolved]
  - Hypokalaemia [Recovered/Resolved]
  - Neutropenia [Recovered/Resolved]
  - Neutropenia [Recovered/Resolved]
  - Neutropenia [Recovered/Resolved]
  - Neutropenia [Recovered/Resolved]
  - Neutropenia [Recovered/Resolved]
  - Neutropenia [Recovered/Resolved]
  - Neutropenia [Recovered/Resolved]
  - Neutropenia [Recovered/Resolved]
  - Neutropenia [Recovered/Resolved]
  - Thrombocytopenia [Not Recovered/Not Resolved]
  - Alanine aminotransferase increased [Recovered/Resolved]
  - Hypophosphataemia [Recovered/Resolved]
  - Hypocalcaemia [Recovered/Resolved]
  - Hypomagnesaemia [Recovered/Resolved]
  - Weight increased [Recovered/Resolved]
  - Anaemia [Recovered/Resolved]
  - Decreased appetite [Recovered/Resolved]
  - Oliguria [Recovered/Resolved]
  - Anorectal disorder [Recovered/Resolved]
  - Anaemia [Recovered/Resolved]
  - Anaemia [Recovered/Resolved]
  - Anaemia [Recovered/Resolved]
  - Anaemia [Recovered/Resolved]
  - Anaemia [Recovered/Resolved]
  - Anaemia [Recovered/Resolved]
  - Anaemia [Recovered/Resolved]
  - Anaemia [Recovered/Resolved]
  - Anaemia [Recovered/Resolved]
  - Anaemia [Recovered/Resolved]
  - Hypomagnesaemia [Recovered/Resolved]
  - Hypophosphataemia [Recovered/Resolved]
  - Alanine aminotransferase increased [Recovered/Resolved]
  - Haemorrhoids [Recovered/Resolved]

NARRATIVE: CASE EVENT DATE: 20110502
